FAERS Safety Report 18455592 (Version 1)
Quarter: 2020Q4

REPORT INFORMATION
  Report Type: Report from Study
  Country: None (occurrence: US)
  Receive Date: 20201102
  Receipt Date: 20201102
  Transmission Date: 20210114
  Serious: Yes (Other)
  Sender: FDA-Public Use
  Company Number: US-ABBVIE-20K-163-3457698-00

PATIENT
  Age: 62 Year
  Sex: Female

DRUGS (3)
  1. RINVOQ [Suspect]
     Active Substance: UPADACITINIB
     Route: 048
     Dates: start: 2020, end: 202010
  2. RINVOQ [Suspect]
     Active Substance: UPADACITINIB
     Indication: RHEUMATOID ARTHRITIS
     Dosage: BY MOUTH
     Route: 048
     Dates: start: 20191115
  3. RINVOQ [Suspect]
     Active Substance: UPADACITINIB
     Route: 048
     Dates: start: 20200106, end: 202005

REACTIONS (6)
  - Gait disturbance [Unknown]
  - Tooth extraction [Not Recovered/Not Resolved]
  - Pain [Not Recovered/Not Resolved]
  - Irritable bowel syndrome [Unknown]
  - Speech disorder [Not Recovered/Not Resolved]
  - Rheumatoid arthritis [Not Recovered/Not Resolved]

NARRATIVE: CASE EVENT DATE: 202005
